FAERS Safety Report 9919352 (Version 2)
Quarter: 2014Q1

REPORT INFORMATION
  Report Type: Spontaneous
  Country: US (occurrence: US)
  Receive Date: 20140224
  Receipt Date: 20140326
  Transmission Date: 20141002
  Serious: Yes (Congenital Anomaly, Other)
  Sender: FDA-Public Use
  Company Number: US-PFIZER INC-2014049299

PATIENT
  Sex: Female

DRUGS (4)
  1. ZOLOFT [Suspect]
     Dosage: UNK
     Route: 064
     Dates: start: 20020424
  2. ZYPREXA [Concomitant]
     Dosage: UNK
     Route: 064
  3. COLACE [Concomitant]
     Dosage: UNK
     Route: 064
  4. SYNTHROID [Concomitant]
     Dosage: UNK
     Route: 064

REACTIONS (5)
  - Maternal exposure during pregnancy [Unknown]
  - Congenital hand malformation [Unknown]
  - Congenital foot malformation [Unknown]
  - Polydactyly [Unknown]
  - Nipple disorder [Unknown]
